FAERS Safety Report 6086313-9 (Version None)
Quarter: 2009Q1

REPORT INFORMATION
  Report Type: 
  Country: None (occurrence: None)
  Receive Date: 20090220
  Receipt Date: 20090211
  Transmission Date: 20090719
  Serious: Yes (Death, Hospitalization, Other)
  Sender: FDA-Public Use
  Company Number: BR-ROXANE LABORATORIES, INC.-2009-RO-00143RO

PATIENT
  Age: 55 Year
  Sex: Male

DRUGS (3)
  1. DEXAMETHASONE [Suspect]
     Indication: MULTIPLE MYELOMA
  2. VINCRISTINE [Suspect]
     Indication: MULTIPLE MYELOMA
  3. ADRIAMYCIN PFS [Suspect]
     Indication: MULTIPLE MYELOMA

REACTIONS (12)
  - ABDOMINAL PAIN [None]
  - ACUTE RESPIRATORY FAILURE [None]
  - ASTHENIA [None]
  - DEHYDRATION [None]
  - DISORIENTATION [None]
  - EOSINOPHILIA [None]
  - HEADACHE [None]
  - HYPOTENSION [None]
  - MUCOSAL DISCOLOURATION [None]
  - OLIGURIA [None]
  - SEPTIC SHOCK [None]
  - STRONGYLOIDIASIS [None]
